FAERS Safety Report 4470174-5 (Version None)
Quarter: 2004Q3

REPORT INFORMATION
  Report Type: 
  Country: None (occurrence: None)
  Receive Date: 20040910
  Receipt Date: 20040803
  Transmission Date: 20050211
  Serious: No
  Sender: FDA-Public Use
  Company Number: 2004227199US

PATIENT
  Age: 46 Year

DRUGS (1)
  1. BEXTRA [Suspect]
     Dates: start: 20040601

REACTIONS (5)
  - DYSPEPSIA [None]
  - FATIGUE [None]
  - RASH ERYTHEMATOUS [None]
  - SKIN HYPERPIGMENTATION [None]
  - URTICARIA [None]
